FAERS Safety Report 5574441-3 (Version None)
Quarter: 2007Q4

REPORT INFORMATION
  Report Type: 
  Country: None (occurrence: None)
  Receive Date: 20071226
  Receipt Date: 20071226
  Transmission Date: 20080405
  Serious: Yes (Death)
  Sender: FDA-Public Use
  Company Number: None

PATIENT
  Age: 73 Year
  Sex: Male
  Weight: 52.6173 kg

DRUGS (1)
  1. FENTANYL 200MG [Suspect]
     Indication: PAIN
     Dosage: 200MG 1PRN IM
     Route: 030
     Dates: start: 20061201, end: 20070216

REACTIONS (1)
  - DEATH [None]
